FAERS Safety Report 5537238-6 (Version None)
Quarter: 2007Q4

REPORT INFORMATION
  Report Type: 
  Country: None (occurrence: None)
  Receive Date: 20071207
  Receipt Date: 20071127
  Transmission Date: 20080405
  Serious: Yes (Other)
  Sender: FDA-Public Use
  Company Number: US-ROCHE-525964

PATIENT
  Age: 21 Year
  Sex: Female
  Weight: 54.4 kg

DRUGS (2)
  1. ACCUTANE [Suspect]
     Indication: DRUG USE FOR UNKNOWN INDICATION
     Route: 048
     Dates: start: 20070713, end: 20070925
  2. ORTHO TRI-CYCLEN [Concomitant]
     Dosage: 1 TAB DAILY DOSE
     Route: 048
     Dates: start: 20070601

REACTIONS (1)
  - ABORTION SPONTANEOUS [None]
